FAERS Safety Report 15798891 (Version 2)
Quarter: 2019Q3

REPORT INFORMATION
  Report Type: Spontaneous
  Country: US (occurrence: US)
  Receive Date: 20190108
  Receipt Date: 20190816
  Transmission Date: 20191004
  Serious: Yes (Hospitalization)
  Sender: FDA-Public Use
  Company Number: US-MYLANLABS-2019M1000264

PATIENT
  Age: 74 Year
  Sex: Female
  Weight: 66 kg

DRUGS (2)
  1. FENTANYL TRANSDERMAL SYSTEM [Suspect]
     Active Substance: FENTANYL
     Indication: INTERVERTEBRAL DISC PROTRUSION
     Dosage: 50 MCG/DAY, CHANGES HER PATCHES EVERY 72 HOURS
     Route: 062
     Dates: start: 2012, end: 20180730
  2. FENTANYL TRANSDERMAL SYSTEM [Suspect]
     Active Substance: FENTANYL
     Indication: PAIN
     Dosage: 37.5 MCG/DAY

REACTIONS (3)
  - Weight decreased [Not Recovered/Not Resolved]
  - Mobility decreased [Unknown]
  - Constipation [Not Recovered/Not Resolved]
